FAERS Safety Report 5318573-3 (Version None)
Quarter: 2007Q2

REPORT INFORMATION
  Report Type: 
  Country: None (occurrence: None)
  Receive Date: 20070504
  Receipt Date: 20070504
  Transmission Date: 20071010
  Serious: Yes (Death, Hospitalization)
  Sender: FDA-Public Use
  Company Number: None

PATIENT
  Sex: Male
  Weight: 65.4 kg

DRUGS (3)
  1. FLUOROURACIL [Suspect]
  2. CISPLATIN [Concomitant]
  3. TAXOTERE [Concomitant]

REACTIONS (20)
  - ACUTE MYOCARDIAL INFARCTION [None]
  - ACUTE PULMONARY OEDEMA [None]
  - DYSPHAGIA [None]
  - EJECTION FRACTION DECREASED [None]
  - HEART RATE INCREASED [None]
  - HYPOXIA [None]
  - ILL-DEFINED DISORDER [None]
  - LOSS OF CONSCIOUSNESS [None]
  - LUNG INFILTRATION [None]
  - MALAISE [None]
  - NAUSEA [None]
  - ORAL INTAKE REDUCED [None]
  - PANCYTOPENIA [None]
  - PHARYNGOLARYNGEAL PAIN [None]
  - PNEUMONIA [None]
  - PULSE ABSENT [None]
  - PUPIL FIXED [None]
  - RESPIRATORY FAILURE [None]
  - VOMITING [None]
  - WHEEZING [None]
